FAERS Safety Report 17970962 (Version 1)
Quarter: 2020Q3

REPORT INFORMATION
  Report Type: Spontaneous
  Country: BR (occurrence: BR)
  Receive Date: 20200702
  Receipt Date: 20200702
  Transmission Date: 20201103
  Serious: Yes (Other)
  Sender: FDA-Public Use
  Company Number: BR-SA-2020SA168143

PATIENT

DRUGS (3)
  1. DONAREN [Concomitant]
     Active Substance: TRAZODONE HYDROCHLORIDE
     Dosage: UNK
     Route: 065
  2. STILNOX [Suspect]
     Active Substance: ZOLPIDEM TARTRATE
     Indication: INSOMNIA
     Dosage: UNK
     Route: 065
  3. VALDOXAN [Concomitant]
     Active Substance: AGOMELATINE
     Dosage: UNK
     Route: 065

REACTIONS (5)
  - Decreased appetite [Recovered/Resolved]
  - Hypotension [Unknown]
  - Psychiatric symptom [Unknown]
  - Asthenia [Unknown]
  - Arrhythmia [Unknown]
